FAERS Safety Report 6342345-4 (Version None)
Quarter: 2009Q3

REPORT INFORMATION
  Report Type: 
  Country: None (occurrence: None)
  Receive Date: 20090907
  Receipt Date: 20090824
  Transmission Date: 20100115
  Serious: Yes (Hospitalization)
  Sender: FDA-Public Use
  Company Number: ES-ELI_LILLY_AND_COMPANY-ES200908005824

PATIENT
  Age: 57 Year
  Sex: Female

DRUGS (5)
  1. FORTEO [Suspect]
     Indication: OSTEOPOROSIS
     Dosage: 20 UG, UNKNOWN
     Route: 058
     Dates: start: 20080501, end: 20090510
  2. OMEPRAZOLE [Concomitant]
     Dosage: 20 MG, UNKNOWN
     Route: 048
  3. CALCIUM SANDOZ FORTE D [Concomitant]
     Dosage: UNK, UNKNOWN
     Route: 048
  4. DETRUSITOL [Concomitant]
     Dosage: 4 MG, UNKNOWN
     Route: 048
  5. LISINOPRIL STADA [Concomitant]
     Dosage: 20 MG, UNKNOWN
     Route: 048

REACTIONS (1)
  - HYPERCALCAEMIA [None]
